FAERS Safety Report 13075001 (Version 2)
Quarter: 2017Q1

REPORT INFORMATION
  Report Type: Spontaneous
  Country: US (occurrence: US)
  Receive Date: 20161230
  Receipt Date: 20170116
  Transmission Date: 20170428
  Serious: Yes (Other)
  Sender: FDA-Public Use
  Company Number: US-JNJFOC-20161218447

PATIENT
  Age: 78 Year
  Sex: Female
  Weight: 51.71 kg

DRUGS (2)
  1. LISTERINE TOTAL CARE ANTICAVITY - FRESH MINT [Suspect]
     Active Substance: SODIUM FLUORIDE
     Indication: ENAMEL ANOMALY
     Dosage: A LITTLE OVER A HALF CAP
     Route: 048
  2. LISTERINE TOTAL CARE ANTICAVITY - FRESH MINT [Suspect]
     Active Substance: SODIUM FLUORIDE
     Indication: TOOTH DISORDER
     Dosage: A LITTLE OVER A HALF CAP
     Route: 048

REACTIONS (2)
  - Oral infection [Not Recovered/Not Resolved]
  - Oral disorder [Not Recovered/Not Resolved]
